FAERS Safety Report 7532031-7 (Version None)
Quarter: 2011Q2

REPORT INFORMATION
  Report Type: 
  Country: None (occurrence: None)
  Receive Date: 20110608
  Receipt Date: 20110530
  Transmission Date: 20111010
  Serious: Yes (Hospitalization, Other)
  Sender: FDA-Public Use
  Company Number: CN-SANOFI-AVENTIS-2011SA033583

PATIENT
  Age: 39 Year
  Sex: Male
  Weight: 65 kg

DRUGS (5)
  1. LANTUS [Suspect]
     Route: 058
     Dates: start: 20080501, end: 20110401
  2. LANTUS [Suspect]
     Route: 058
     Dates: start: 20110401, end: 20110424
  3. LANTUS [Suspect]
     Route: 058
     Dates: start: 20110526
  4. LANTUS [Suspect]
     Indication: DIABETES MELLITUS
     Route: 058
     Dates: start: 20110523, end: 20110525
  5. INSULIN ASPART [Concomitant]
     Indication: DIABETES MELLITUS
     Dosage: 11IU-5IU-10IU
     Dates: start: 20080501

REACTIONS (2)
  - KETOACIDOSIS [None]
  - PRODUCT COUNTERFEIT [None]
